FAERS Safety Report 8092780-1 (Version None)
Quarter: 2012Q1

REPORT INFORMATION
  Report Type: 
  Country: None (occurrence: None)
  Receive Date: 20120128
  Receipt Date: 20110812
  Transmission Date: 20120608
  Serious: No
  Sender: FDA-Public Use
  Company Number: US-ABBOTT-11P-163-0846177-00

PATIENT
  Age: 73 Year
  Sex: Male

DRUGS (11)
  1. HUMIRA [Suspect]
     Indication: PSORIASIS
  2. CELEBREX [Concomitant]
  3. SULFASALAZINE [Concomitant]
     Indication: INFLAMMATORY BOWEL DISEASE
  4. CELEBREX [Concomitant]
     Indication: PRODUCT USED FOR UNKNOWN INDICATION
     Dosage: DAILY
  5. HUMIRA [Suspect]
     Indication: RHEUMATOID ARTHRITIS
  6. LEFLUNOMIDE [Concomitant]
     Indication: ARTHRITIS
  7. CALCIUM CARBONATE [Concomitant]
     Indication: PROPHYLAXIS
     Dosage: FOR TIMES A DAY
     Dates: start: 19960101
  8. PRILOSEC [Concomitant]
     Indication: PRODUCT USED FOR UNKNOWN INDICATION
  9. LOSARTAN POTASSIUM [Concomitant]
     Indication: PRODUCT USED FOR UNKNOWN INDICATION
     Dates: start: 20100901
  10. HUMIRA [Suspect]
     Indication: PSORIATIC ARTHROPATHY
     Dates: start: 20080412
  11. ZOCOR [Concomitant]
     Indication: PRODUCT USED FOR UNKNOWN INDICATION

REACTIONS (5)
  - RHEUMATOID ARTHRITIS [None]
  - PAIN [None]
  - SWELLING [None]
  - MUSCULOSKELETAL STIFFNESS [None]
  - PSORIATIC ARTHROPATHY [None]
